FAERS Safety Report 5699944-2 (Version None)
Quarter: 2008Q2

REPORT INFORMATION
  Report Type: 
  Country: None (occurrence: None)
  Receive Date: 20080410
  Receipt Date: 20080402
  Transmission Date: 20081010
  Serious: Yes (Hospitalization, Other)
  Sender: FDA-Public Use
  Company Number: US-MERCK-0706USA03505

PATIENT
  Age: 77 Year
  Sex: Female

DRUGS (2)
  1. FOSAMAX [Suspect]
     Indication: OSTEOPOROSIS
     Route: 048
     Dates: start: 20000901, end: 20070101
  2. CARDIZEM [Concomitant]
     Route: 065
     Dates: start: 19920101

REACTIONS (10)
  - ABSCESS [None]
  - ARTHROPATHY [None]
  - CONTUSION [None]
  - FEMUR FRACTURE [None]
  - GASTROINTESTINAL TRACT ADENOMA [None]
  - HERPES ZOSTER [None]
  - HYSTERECTOMY [None]
  - INCREASED TENDENCY TO BRUISE [None]
  - INFECTION [None]
  - OSTEONECROSIS [None]
